FAERS Safety Report 20236392 (Version 1)
Quarter: 2021Q4

REPORT INFORMATION
  Report Type: Spontaneous
  Country: US (occurrence: US)
  Receive Date: 20211228
  Receipt Date: 20211228
  Transmission Date: 20220303
  Serious: No
  Sender: FDA-Public Use
  Company Number: US-CELLTRION INC.-2021US014182

PATIENT

DRUGS (2)
  1. TRUXIMA [Suspect]
     Active Substance: RITUXIMAB-ABBS
     Indication: Autoimmune lymphoproliferative syndrome
     Dosage: 900 MG WEEKLY X 4
     Dates: start: 20211004
  2. TRUXIMA [Suspect]
     Active Substance: RITUXIMAB-ABBS
     Indication: Pancytopenia
     Dosage: 900 MG WEEKLY X 4
     Dates: start: 20211011

REACTIONS (1)
  - Off label use [Unknown]
